FAERS Safety Report 16075562 (Version 1)
Quarter: 2019Q1

REPORT INFORMATION
  Report Type: Spontaneous
  Country: US (occurrence: US)
  Receive Date: 20190315
  Receipt Date: 20190315
  Transmission Date: 20190418
  Serious: Yes (Life-Threatening, Hospitalization)
  Sender: FDA-Public Use
  Company Number: US-SUN PHARMACEUTICAL INDUSTRIES LTD-2019R1-201718

PATIENT
  Age: 36 Year
  Sex: Female

DRUGS (1)
  1. LOPERAMIDE [Suspect]
     Active Substance: LOPERAMIDE
     Indication: PRODUCT USED FOR UNKNOWN INDICATION
     Dosage: (400-600 MILLIGRAM, DAILY)
     Route: 065

REACTIONS (6)
  - Acute kidney injury [Unknown]
  - Bradycardia [Unknown]
  - Bradypnoea [Unknown]
  - Hypothermia [Unknown]
  - Arrhythmia [Unknown]
  - Hypoglycaemia [Unknown]
